FAERS Safety Report 6305055-5 (Version None)
Quarter: 2009Q3

REPORT INFORMATION
  Report Type: 
  Country: None (occurrence: None)
  Receive Date: 20090811
  Receipt Date: 20090730
  Transmission Date: 20100115
  Serious: Yes (Death, Other)
  Sender: FDA-Public Use
  Company Number: KR-PFIZER INC-2009249747

PATIENT
  Age: 60 Year

DRUGS (2)
  1. VORICONAZOLE [Suspect]
     Indication: ASPERGILLOSIS
     Dosage: 350 MG, 2X/DAY
     Route: 042
     Dates: start: 20080610
  2. VORICONAZOLE [Suspect]
     Dosage: 250 MG, 2X/DAY
     Dates: end: 20080710

REACTIONS (1)
  - DEATH [None]
